FAERS Safety Report 24574447 (Version 1)
Quarter: 2024Q4

REPORT INFORMATION
  Report Type: Report from Study
  Country: US (occurrence: US)
  Receive Date: 20241104
  Receipt Date: 20241104
  Transmission Date: 20250115
  Serious: Yes (Hospitalization)
  Sender: ACCORD
  Company Number: US-Accord-453330

PATIENT
  Sex: Male

DRUGS (1)
  1. CLOZAPINE [Suspect]
     Active Substance: CLOZAPINE
     Indication: Bipolar disorder
     Dosage: 200MG, ORAL, EVERY NIGHT AT BEDTIME
     Route: 048

REACTIONS (2)
  - Lower limb fracture [Unknown]
  - Therapy interrupted [Unknown]
